FAERS Safety Report 22526466 (Version 1)
Quarter: 2023Q2

REPORT INFORMATION
  Report Type: Spontaneous
  Country: US (occurrence: None)
  Receive Date: 20230606
  Receipt Date: 20230606
  Transmission Date: 20230722
  Serious: Yes (Hospitalization)
  Sender: FDA-Public Use
  Company Number: 2023A125403

PATIENT

DRUGS (1)
  1. BEVESPI AEROSPHERE [Suspect]
     Active Substance: FORMOTEROL FUMARATE\GLYCOPYRROLATE
     Route: 055

REACTIONS (5)
  - Trigeminal neuralgia [Unknown]
  - Wrong technique in product usage process [Unknown]
  - Device use issue [Unknown]
  - Device delivery system issue [Unknown]
  - Device malfunction [Unknown]
